FAERS Safety Report 7770084-1 (Version None)
Quarter: 2011Q3

REPORT INFORMATION
  Report Type: 
  Country: None (occurrence: None)
  Receive Date: 20110922
  Receipt Date: 20100920
  Transmission Date: 20111222
  Serious: Yes (Other)
  Sender: FDA-Public Use
  Company Number: US-ASTRAZENECA-2010SE37692

PATIENT
  Age: 17226 Day
  Sex: Female
  Weight: 61.7 kg

DRUGS (11)
  1. SEROQUEL XR [Suspect]
     Indication: BIPOLAR I DISORDER
     Route: 048
  2. NEURONTIN [Concomitant]
     Indication: FIBROMYALGIA
     Route: 048
     Dates: start: 20040421
  3. ESTRADIOL [Concomitant]
     Indication: MENOPAUSE
     Route: 048
     Dates: start: 20040421
  4. LEVOTHYROXINE SODIUM [Concomitant]
     Indication: HYPOTHYROIDISM
     Route: 048
     Dates: start: 20040401
  5. CLONAZEPAM [Concomitant]
  6. ROBAXIN [Concomitant]
  7. BACTRIM DS [Concomitant]
  8. ULTRAM [Concomitant]
  9. AMBIEN [Concomitant]
  10. SEROQUEL XR [Suspect]
     Route: 048
     Dates: start: 20100806, end: 20100810
  11. ZOCOR [Concomitant]
     Indication: HYPERCHOLESTEROLAEMIA
     Route: 048
     Dates: start: 20040421

REACTIONS (1)
  - CHOREA [None]
